FAERS Safety Report 10535378 (Version 1)
Quarter: 2014Q4

REPORT INFORMATION
  Report Type: Spontaneous
  Country: IT (occurrence: IT)
  Receive Date: 20141022
  Receipt Date: 20141022
  Transmission Date: 20150529
  Serious: Yes (Other)
  Sender: FDA-Public Use
  Company Number: IT-GLAXOSMITHKLINE-IT2014GSK005892

PATIENT
  Age: 22 Year
  Sex: Male

DRUGS (3)
  1. FLUSPIRAL [Suspect]
     Active Substance: FLUTICASONE PROPIONATE
     Indication: BRONCHITIS
     Dosage: UNK
     Route: 065
     Dates: start: 20131231, end: 20140102
  2. BENTELAN [Suspect]
     Active Substance: BETAMETHASONE SODIUM PHOSPHATE
     Indication: BRONCHITIS
     Dosage: UNK
     Dates: start: 20131231, end: 20140102
  3. BRONCOVALEAS [Suspect]
     Active Substance: ALBUTEROL
     Indication: BRONCHITIS
     Dosage: 24 UNK, QD
     Dates: start: 20131231, end: 20140102

REACTIONS (3)
  - Pruritus generalised [Recovered/Resolved]
  - Urticaria [Unknown]
  - Cutaneous lupus erythematosus [Recovered/Resolved]

NARRATIVE: CASE EVENT DATE: 20140101
